FAERS Safety Report 18517212 (Version 4)
Quarter: 2021Q2

REPORT INFORMATION
  Report Type: Spontaneous
  Country: US (occurrence: US)
  Receive Date: 20201118
  Receipt Date: 20210413
  Transmission Date: 20210717
  Serious: No
  Sender: FDA-Public Use
  Company Number: US-PFIZER INC-2018006996

PATIENT
  Age: 9 Year
  Sex: Female
  Weight: 24.04 kg

DRUGS (2)
  1. GENOTROPIN [Suspect]
     Active Substance: SOMATROPIN
     Indication: SMALL FOR DATES BABY
     Dosage: 1 IU, DAILY (TO THIGH OR ARM)
     Dates: start: 201710, end: 20180729
  2. GENOTROPIN [Suspect]
     Active Substance: SOMATROPIN
     Dosage: 1.2 ML, DAILY (NIGHTLY)

REACTIONS (5)
  - Device breakage [Unknown]
  - Drug dose omission by device [Unknown]
  - Device information output issue [Unknown]
  - Device use issue [Unknown]
  - Product storage error [Unknown]

NARRATIVE: CASE EVENT DATE: 201807
